FAERS Safety Report 7272363-3 (Version None)
Quarter: 2011Q1

REPORT INFORMATION
  Report Type: 
  Country: None (occurrence: None)
  Receive Date: 20110203
  Receipt Date: 20110131
  Transmission Date: 20110831
  Serious: Yes (Other)
  Sender: FDA-Public Use
  Company Number: DE-SANOFI-AVENTIS-2011SA005820

PATIENT
  Age: 65 Year
  Sex: Male

DRUGS (3)
  1. VOLTAREN [Concomitant]
     Route: 065
     Dates: start: 20101001
  2. MULTAQ [Suspect]
     Route: 065
     Dates: start: 20100501, end: 20100501
  3. DABIGATRAN ETEXILATE [Concomitant]
     Indication: THROMBOSIS PROPHYLAXIS
     Route: 065

REACTIONS (2)
  - ASPARTATE AMINOTRANSFERASE INCREASED [None]
  - ALANINE AMINOTRANSFERASE INCREASED [None]
